FAERS Safety Report 10240069 (Version 1)
Quarter: 2014Q2

REPORT INFORMATION
  Report Type: Report from Study
  Country: US (occurrence: US)
  Receive Date: 20140617
  Receipt Date: 20140617
  Transmission Date: 20141212
  Serious: Yes (Other)
  Sender: FDA-Public Use
  Company Number: US-ROCHE-1418853

PATIENT
  Age: 49 Year
  Sex: Female
  Weight: 93.98 kg

DRUGS (1)
  1. HERCEPTIN [Suspect]
     Indication: BREAST CANCER
     Route: 042
     Dates: start: 201312, end: 2014

REACTIONS (1)
  - Paralysis [Not Recovered/Not Resolved]
